FAERS Safety Report 5923595-5 (Version None)
Quarter: 2008Q3

REPORT INFORMATION
  Report Type: 
  Country: None (occurrence: None)
  Receive Date: 20080909
  Receipt Date: 20080428
  Transmission Date: 20090109
  Serious: Yes (Hospitalization)
  Sender: FDA-Public Use
  Company Number: 163-20785-08040151

PATIENT
  Age: 61 Year
  Sex: Male
  Weight: 99.1 kg

DRUGS (22)
  1. THALOMID [Suspect]
     Indication: MULTIPLE MYELOMA
     Dosage: 100 MG, DAILY, ORAL ; 200 MG, DAILY, ORAL
     Route: 048
     Dates: end: 20080323
  2. THALOMID [Suspect]
     Indication: MULTIPLE MYELOMA
     Dosage: 100 MG, DAILY, ORAL ; 200 MG, DAILY, ORAL
     Route: 048
     Dates: start: 20060107
  3. DEXAMETHASONE TAB [Suspect]
     Indication: MULTIPLE MYELOMA
     Dosage: 20 MG, ORAL ; 40 MG, ORAL
     Route: 048
     Dates: start: 20060107, end: 20080320
  4. DEXAMETHASONE TAB [Suspect]
     Indication: MULTIPLE MYELOMA
     Dosage: 20 MG, ORAL ; 40 MG, ORAL
     Route: 048
     Dates: start: 20060107
  5. VELCADE [Suspect]
     Indication: MULTIPLE MYELOMA
     Dosage: 1 MG/M2 ; 1 MG/M2
     Dates: end: 20060320
  6. VELCADE [Suspect]
     Indication: MULTIPLE MYELOMA
     Dosage: 1 MG/M2 ; 1 MG/M2
     Dates: start: 20060104
  7. MELPHALAN (MELPHALAN) [Suspect]
     Indication: MULTIPLE MYELOMA
     Dosage: 200 FEG/M2 ; 200 FEG/M2
     Dates: start: 20060507, end: 20060507
  8. MELPHALAN (MELPHALAN) [Suspect]
     Indication: MULTIPLE MYELOMA
     Dosage: 200 FEG/M2 ; 200 FEG/M2
     Dates: start: 20060924, end: 20060924
  9. CISPLATIN [Suspect]
     Indication: MULTIPLE MYELOMA
     Dosage: 7.5 FEG/M2 ; 10 FEG/M2
     Dates: end: 20070501
  10. CISPLATIN [Suspect]
     Indication: MULTIPLE MYELOMA
     Dosage: 7.5 FEG/M2 ; 10 FEG/M2
     Dates: start: 20060107
  11. ADRIAMYCIN PFS [Suspect]
     Indication: MULTIPLE MYELOMA
     Dosage: 7.5 FEG/M2 ; 10 FEG/M2
     Dates: end: 20070501
  12. ADRIAMYCIN PFS [Suspect]
     Indication: MULTIPLE MYELOMA
     Dosage: 7.5 FEG/M2 ; 10 FEG/M2
     Dates: start: 20060107
  13. CYCLOPHOSPHAMIDE [Suspect]
     Indication: MULTIPLE MYELOMA
     Dosage: 300 FEG/M2 ; 400 FEG/M2
     Dates: end: 20070501
  14. CYCLOPHOSPHAMIDE [Suspect]
     Indication: MULTIPLE MYELOMA
     Dosage: 300 FEG/M2 ; 400 FEG/M2
     Dates: start: 20060107
  15. ETOPOSIDE [Suspect]
     Indication: MULTIPLE MYELOMA
     Dosage: 10 FEG/M2 ; 40 FEG/M2
     Dates: end: 20070501
  16. ETOPOSIDE [Suspect]
     Indication: MULTIPLE MYELOMA
     Dosage: 10 FEG/M2 ; 40 FEG/M2
     Dates: start: 20060107
  17. PROCRIT (ERYTHROPOIETIN) (SOLUTION) [Concomitant]
  18. ACYCLOVIR (ACICLOVIR) (400 MILLIGRAM, TABLETS) [Concomitant]
  19. SENNA (SENNA) (TABLETS) [Concomitant]
  20. ASPIRIN [Concomitant]
  21. FLUCONAZOLE (FLUCONAZOLE) (200 MILLIGRAM, TABLETS) [Concomitant]
  22. BACTRIM DS [Concomitant]

REACTIONS (1)
  - PNEUMONIA [None]
